FAERS Safety Report 7267805-3 (Version None)
Quarter: 2011Q1

REPORT INFORMATION
  Report Type: 
  Country: None (occurrence: None)
  Receive Date: 20110201
  Receipt Date: 20110124
  Transmission Date: 20110831
  Serious: Yes (Death)
  Sender: FDA-Public Use
  Company Number: B0659474A

PATIENT
  Sex: Male

DRUGS (1)
  1. AVAGLIM [Suspect]
     Route: 065

REACTIONS (5)
  - DEATH [None]
  - DIZZINESS [None]
  - NAUSEA [None]
  - HYPOGLYCAEMIA [None]
  - PARALYSIS [None]
